FAERS Safety Report 19041153 (Version 5)
Quarter: 2022Q4

REPORT INFORMATION
  Report Type: Report from Study
  Country: IN (occurrence: IN)
  Receive Date: 20210322
  Receipt Date: 20221007
  Transmission Date: 20230113
  Serious: Yes (Death, Hospitalization, Other)
  Sender: FDA-Public Use
  Company Number: IN-BOEHRINGERINGELHEIM-2021-BI-091427

PATIENT
  Age: 56 Year
  Sex: Female
  Weight: 55 kg

DRUGS (5)
  1. NINTEDANIB [Suspect]
     Active Substance: NINTEDANIB
     Indication: Non-small cell lung cancer
     Dosage: FORM OF ADMIN: EAR WASH SOLUTION
     Dates: start: 20200906, end: 20200926
  2. NINTEDANIB [Suspect]
     Active Substance: NINTEDANIB
     Dates: start: 20200927, end: 20201027
  3. DOCETAXEL [Suspect]
     Active Substance: DOCETAXEL
     Indication: Product used for unknown indication
     Dates: start: 20200905, end: 20200905
  4. DOCETAXEL [Suspect]
     Active Substance: DOCETAXEL
     Dates: start: 20200926, end: 20200926
  5. amlodipine + atenolol [Concomitant]
     Indication: Hypertension
     Dosage: 5/50 MILLIGRAMS

REACTIONS (2)
  - Lung adenocarcinoma [Fatal]
  - Gastrointestinal toxicity [Recovered/Resolved]

NARRATIVE: CASE EVENT DATE: 20201112
